FAERS Safety Report 7630264-2 (Version None)
Quarter: 2011Q3

REPORT INFORMATION
  Report Type: 
  Country: None (occurrence: None)
  Receive Date: 20110722
  Receipt Date: 20110711
  Transmission Date: 20111222
  Serious: Yes (Death)
  Sender: FDA-Public Use
  Company Number: JP-MEDIMMUNE-MEDI-0010885

PATIENT
  Sex: Male
  Weight: 4.22 kg

DRUGS (1)
  1. SYNAGIS [Suspect]
     Indication: PREMATURE BABY
     Route: 030
     Dates: start: 20100225, end: 20100325

REACTIONS (1)
  - SUDDEN INFANT DEATH SYNDROME [None]
